FAERS Safety Report 9022315 (Version 2)
Quarter: 2013Q2

REPORT INFORMATION
  Report Type: Spontaneous
  Country: MX (occurrence: MX)
  Receive Date: 20130118
  Receipt Date: 20130408
  Transmission Date: 20140414
  Serious: Yes (Other)
  Sender: FDA-Public Use
  Company Number: PHHY2013MX004107

PATIENT
  Age: 81 Year
  Sex: Female

DRUGS (8)
  1. CO-DIOVAN [Suspect]
     Indication: HYPERTENSION
     Dosage: 1DF (320/12.5MG), DAILY
     Route: 048
     Dates: start: 201112
  2. TENORMIN [Concomitant]
     Indication: SINUS BRADYCARDIA
     Dosage: 100 MG, DAILY
     Dates: start: 201207
  3. TENORMIN [Concomitant]
     Indication: HYPERTENSION
  4. ASPIRIN PROTECT [Concomitant]
     Indication: COAGULOPATHY
     Dosage: 1 DF, DAILY
     Dates: start: 2006
  5. PRAVASTATIN [Concomitant]
     Indication: ARTERIOSCLEROSIS
     Dosage: 1 DF, IN THE NIGHT
     Dates: start: 2010
  6. ELATEC [Concomitant]
     Indication: VENOUS INSUFFICIENCY
     Dosage: UNK UKN, UNK
  7. ALEVIAN [Concomitant]
     Indication: GASTROINTESTINAL DISORDER
     Dosage: 2 DF, DAILY
     Dates: start: 201211
  8. ALEVIAN [Concomitant]
     Indication: COLITIS

REACTIONS (9)
  - Cerebral ischaemia [Not Recovered/Not Resolved]
  - Epilepsy [Recovered/Resolved]
  - Faecaloma [Not Recovered/Not Resolved]
  - Diverticulum [Unknown]
  - Nervous system disorder [Unknown]
  - Cow^s milk intolerance [Unknown]
  - Abdominal distension [Unknown]
  - Diarrhoea [Recovered/Resolved]
  - Constipation [Recovered/Resolved]
